FAERS Safety Report 23199704 (Version 1)
Quarter: 2023Q4

REPORT INFORMATION
  Report Type: Spontaneous
  Country: US (occurrence: US)
  Receive Date: 20231117
  Receipt Date: 20231117
  Transmission Date: 20240110
  Serious: No
  Sender: FDA-Public Use
  Company Number: US-Stemline Therapeutics, Inc.-2023ST003095

PATIENT
  Age: 83 Year
  Sex: Female

DRUGS (1)
  1. ORSERDU [Suspect]
     Active Substance: ELACESTRANT
     Indication: Product used for unknown indication
     Dosage: 345 MG, ONCE A DAY
     Route: 048
     Dates: start: 202306

REACTIONS (2)
  - Eye disorder [Unknown]
  - Product after taste [Unknown]
